FAERS Safety Report 23548467 (Version 1)
Quarter: 2024Q1

REPORT INFORMATION
  Report Type: Spontaneous
  Country: US (occurrence: None)
  Receive Date: 20240219
  Receipt Date: 20240219
  Transmission Date: 20240410
  Serious: Yes (Life-Threatening, Disabling)
  Sender: FDA-Public Use
  Company Number: None

PATIENT
  Age: 61 Year
  Sex: Male
  Weight: 83.25 kg

DRUGS (15)
  1. ARIPIPRAZOLE [Suspect]
     Active Substance: ARIPIPRAZOLE
     Indication: Depression
     Dosage: OTHER QUANTITY : 30 TABLET(S);?FREQUENCY : DAILY;?
     Route: 048
     Dates: start: 20170101, end: 20240219
  2. ARIPIPRAZOLE [Suspect]
     Active Substance: ARIPIPRAZOLE
     Indication: Anxiety
  3. ADEFOVIR [Concomitant]
     Active Substance: ADEFOVIR
  4. ARIPIPRAZOLE [Concomitant]
  5. balcofen [Concomitant]
  6. DAPAGLIFLOZIN [Concomitant]
  7. DOXYCYCLINE [Concomitant]
  8. FAMOTIDINE [Concomitant]
  9. GABAPENTIN [Concomitant]
  10. LISINOPRIL [Concomitant]
  11. METFORMIN [Concomitant]
  12. PANTOPRAZOLE [Concomitant]
  13. RYBELSUS [Concomitant]
     Active Substance: SEMAGLUTIDE
  14. tramdol [Concomitant]
  15. TRAZODONE [Concomitant]

REACTIONS (5)
  - Binge eating [None]
  - Libido increased [None]
  - Hypertension [None]
  - Diabetes mellitus [None]
  - Renal disorder [None]

NARRATIVE: CASE EVENT DATE: 20240219
